FAERS Safety Report 8232107-5 (Version None)
Quarter: 2012Q1

REPORT INFORMATION
  Report Type: 
  Country: None (occurrence: None)
  Receive Date: 20120323
  Receipt Date: 20120312
  Transmission Date: 20120608
  Serious: Yes (Hospitalization)
  Sender: FDA-Public Use
  Company Number: US-BAYER-2011-067725

PATIENT
  Age: 27 Year
  Sex: Female
  Weight: 112 kg

DRUGS (15)
  1. YAZ [Suspect]
     Indication: PREMENSTRUAL SYNDROME
  2. NAPROXEN [Concomitant]
     Dosage: 550 MG, UNK
     Dates: start: 20070521
  3. TRAMADOL HCL [Concomitant]
     Dosage: 50 MG, UNK
     Route: 048
     Dates: start: 20070517
  4. GALENIC /NEOMYCIN/POLYMYCIN B/ [Concomitant]
     Dosage: UNK
     Dates: start: 20070517
  5. IMITREX [Concomitant]
     Indication: MIGRAINE
     Dosage: UNK
     Route: 048
     Dates: start: 20070514, end: 20070531
  6. TOPROL-XL [Concomitant]
  7. FOLIC ACID [Concomitant]
  8. CEFOTAN [Concomitant]
  9. LORATADINE [Concomitant]
     Dosage: 10 MG, UNK
     Route: 048
     Dates: start: 20070520
  10. HYDROXYZINE [Concomitant]
     Dosage: 50 MG, UNK
     Route: 048
     Dates: start: 20070514
  11. IBUPROFEN (ADVIL) [Concomitant]
     Route: 048
  12. PROMETHAZINE [Concomitant]
     Dosage: 25 MG, UNK
     Route: 048
     Dates: start: 20070521
  13. FERREX [Concomitant]
     Dosage: 150 MG, UNK
     Route: 048
     Dates: start: 20070521
  14. CEFDINIR [Concomitant]
     Dosage: 300 MG, UNK
     Route: 048
     Dates: start: 20070517
  15. CYCLOBENZAPRINE HCL [Concomitant]
     Dosage: 10 MG, UNK
     Route: 048
     Dates: start: 20070521

REACTIONS (12)
  - INJURY [None]
  - NAUSEA [None]
  - SUPERIOR SAGITTAL SINUS THROMBOSIS [None]
  - PAIN [None]
  - MIGRAINE [None]
  - VISUAL IMPAIRMENT [None]
  - MENTAL DISORDER [None]
  - EMOTIONAL DISTRESS [None]
  - GENERAL PHYSICAL HEALTH DETERIORATION [None]
  - ANXIETY [None]
  - NECK PAIN [None]
  - VERTIGO [None]
